FAERS Safety Report 17995180 (Version 3)
Quarter: 2020Q3

REPORT INFORMATION
  Report Type: Spontaneous
  Country: US (occurrence: US)
  Receive Date: 20200708
  Receipt Date: 20200911
  Transmission Date: 20201103
  Serious: Yes (Hospitalization, Other)
  Sender: FDA-Public Use
  Company Number: US-NOVOPROD-738707

PATIENT
  Sex: Male

DRUGS (1)
  1. LEVEMIR [Suspect]
     Active Substance: INSULIN DETEMIR
     Indication: DIABETES MELLITUS
     Dosage: UNK
     Route: 058
     Dates: end: 2004

REACTIONS (5)
  - Skin ulcer [Unknown]
  - Vomiting [Unknown]
  - Eye haemorrhage [Recovering/Resolving]
  - Cataract [Unknown]
  - Pyrexia [Unknown]

NARRATIVE: CASE EVENT DATE: 2000
